FAERS Safety Report 7401808-0 (Version None)
Quarter: 2011Q1

REPORT INFORMATION
  Report Type: 
  Country: None (occurrence: None)
  Receive Date: 20110329
  Receipt Date: 20110314
  Transmission Date: 20110831
  Serious: Yes (Other)
  Sender: FDA-Public Use
  Company Number: 029899

PATIENT
  Sex: Female

DRUGS (1)
  1. CIMZIA [Suspect]
     Dosage: TWO DOSES, (400 MG IN TOTAL) SUBCUTANEOUS
     Route: 058

REACTIONS (2)
  - RASH GENERALISED [None]
  - RASH PRURITIC [None]
